FAERS Safety Report 6932666-6 (Version None)
Quarter: 2010Q3

REPORT INFORMATION
  Report Type: 
  Country: None (occurrence: None)
  Receive Date: 20100819
  Receipt Date: 20100809
  Transmission Date: 20110219
  Serious: Yes (Other)
  Sender: FDA-Public Use
  Company Number: US-JNJFOC-20100507606

PATIENT
  Age: 3 Year
  Sex: Male
  Weight: 15.42 kg

DRUGS (2)
  1. CHILDREN'S TYLENOL SUSPENSION [Suspect]
     Route: 048
  2. CHILDREN'S TYLENOL SUSPENSION [Suspect]
     Indication: PYREXIA
     Route: 048

REACTIONS (2)
  - HAEMATEMESIS [None]
  - PRODUCT QUALITY ISSUE [None]
